FAERS Safety Report 8574916-9 (Version None)
Quarter: 2012Q3

REPORT INFORMATION
  Report Type: 
  Country: None (occurrence: None)
  Receive Date: 20120807
  Receipt Date: 20120709
  Transmission Date: 20120928
  Serious: No
  Sender: FDA-Public Use
  Company Number: US-009507513-1207USA004745

PATIENT

DRUGS (13)
  1. FOSAMAX [Concomitant]
     Dosage: UNK
  2. CREON [Concomitant]
  3. METOPROLOL TARTRATE [Concomitant]
     Dosage: 1 MG/ML
  4. ENALAPRIL MALEATE [Concomitant]
     Dosage: 2.5 MG, UNK
  5. VITAMIN D [Concomitant]
  6. OMEPRAZOLE [Concomitant]
     Dosage: 20 MG, UNK
  7. VICTRELIS [Suspect]
     Dosage: 200 MG, TID
     Route: 048
  8. PEGASYS [Concomitant]
  9. DOCUSATE SODIUM [Concomitant]
     Dosage: 150/15 ML
  10. VITAMINS (UNSPECIFIED) [Concomitant]
  11. LANTUS [Concomitant]
     Dosage: 100 ML, UNK
  12. SENNA-MINT WAF [Concomitant]
  13. REBETOL [Concomitant]
     Dosage: 600 MG, UNK

REACTIONS (1)
  - ANAEMIA [None]
